FAERS Safety Report 10260906 (Version 1)
Quarter: 2014Q2

REPORT INFORMATION
  Report Type: Spontaneous
  Country: AT (occurrence: AT)
  Receive Date: 20140626
  Receipt Date: 20140626
  Transmission Date: 20141212
  Serious: Yes (Life-Threatening, Hospitalization, Other)
  Sender: FDA-Public Use
  Company Number: AT-ASTRAZENECA-2014SE45928

PATIENT
  Age: 40 Year
  Sex: Female

DRUGS (55)
  1. SEROQUEL [Suspect]
     Route: 048
     Dates: start: 20130325, end: 20130331
  2. SEROQUEL [Suspect]
     Route: 048
     Dates: start: 20130401, end: 20130422
  3. SEROQUEL [Suspect]
     Route: 048
     Dates: start: 20130423, end: 20130424
  4. SEROQUEL [Suspect]
     Route: 048
     Dates: start: 20130329, end: 20130409
  5. SEROQUEL [Suspect]
     Route: 048
     Dates: start: 20130410, end: 20130424
  6. SEROQUEL [Suspect]
     Route: 048
     Dates: start: 20130425, end: 20130425
  7. SEROQUEL [Suspect]
     Route: 048
     Dates: start: 20130426, end: 20130529
  8. SEROQUEL [Suspect]
     Route: 048
     Dates: start: 20130530
  9. INTERFERON [Suspect]
     Route: 065
     Dates: start: 201210, end: 20130513
  10. REBETOL [Suspect]
     Dosage: 800 DAILY
     Route: 065
     Dates: start: 20130325, end: 20130514
  11. PEGASYS [Suspect]
     Dosage: 180 UG 1X/WK, SUNDAYS
     Route: 065
     Dates: end: 20130512
  12. LYRICA [Concomitant]
     Dosage: 50 DAILY
     Dates: start: 20130523, end: 20130524
  13. LYRICA [Concomitant]
     Dosage: 75 DAILY
     Dates: start: 20130525, end: 20130526
  14. LYRICA [Concomitant]
     Dosage: 125 DAILY
     Dates: start: 20130527, end: 20130527
  15. LYRICA [Concomitant]
     Dosage: 150 DAILY
     Dates: start: 20130528, end: 20130528
  16. LYRICA [Concomitant]
     Dosage: 200 DAILY
     Dates: start: 20130529
  17. CIPRALEX [Concomitant]
     Dosage: 10 DAILY
     Dates: start: 20130321, end: 20130328
  18. CIPRALEX [Concomitant]
     Dosage: 20 DAILY
     Dates: start: 20130329, end: 20130405
  19. CIPRALEX [Concomitant]
     Dosage: 30 DAILY
     Dates: start: 20130406, end: 20130528
  20. CIPRALEX [Concomitant]
     Dosage: 20 DAILY
     Dates: start: 20130529, end: 20130529
  21. CIPRALEX [Concomitant]
     Dosage: 10 DAILY
     Dates: start: 20130530, end: 20130530
  22. IXEL [Concomitant]
     Dosage: 50 DAILY
     Dates: start: 20130325, end: 20130325
  23. IXEL [Concomitant]
     Dosage: 100 DAILY
     Dates: start: 20130326, end: 20130408
  24. IXEL [Concomitant]
     Dosage: 50 DAILY
     Dates: start: 20130409, end: 20130410
  25. MIRTABENE [Concomitant]
     Dosage: 30 DAILY
     Dates: start: 20130321, end: 20130408
  26. MIRTABENE [Concomitant]
     Dosage: 60 DAILY
     Dates: start: 20130409, end: 20130419
  27. MIRTABENE [Concomitant]
     Dosage: 90 DAILY
     Dates: start: 20130420, end: 20130516
  28. MIRTABENE [Concomitant]
     Dosage: 60 DAILY
     Dates: start: 20130517, end: 20130528
  29. MIRTABENE [Concomitant]
     Dosage: 30 DAILY
     Dates: start: 20130529
  30. COPEGUS [Concomitant]
     Dosage: 800 DAILY
     Dates: end: 20130325
  31. SERETIDE INHALATOR [Concomitant]
     Dates: end: 20130513
  32. CHLORHEXAMED [Concomitant]
     Dates: start: 20130415, end: 20130513
  33. NICORETTE [Concomitant]
     Dates: end: 20130514
  34. NICORETTE [Concomitant]
     Dosage: 25 MG/16 HOURS
     Dates: start: 20130515, end: 20130528
  35. NICORETTE [Concomitant]
     Dosage: 15 MG/16 HOURS
     Dates: start: 20130529
  36. NEXIUM [Concomitant]
     Dosage: 20 DAILY
     Route: 048
     Dates: start: 20130514, end: 20130524
  37. NEXIUM [Concomitant]
     Dosage: 40 DAILY
     Route: 048
     Dates: start: 20130525
  38. LOVENOX [Concomitant]
     Dosage: 40 DAILY
     Dates: start: 20130514
  39. KALIORAL [Concomitant]
     Dates: start: 20130514
  40. SOLUDACORTIN [Concomitant]
     Dosage: 500 DAILY
     Route: 042
     Dates: start: 20130515, end: 20130515
  41. SOLUDACORTIN [Concomitant]
     Dosage: 1000 DAILY
     Route: 042
     Dates: start: 20130518, end: 20130518
  42. SOLUDACORTIN [Concomitant]
     Dosage: 50 DAILY
     Route: 042
     Dates: start: 20130521, end: 20130521
  43. ROKIPRIM [Concomitant]
     Dosage: 500 DAILY
     Route: 042
     Dates: start: 20130515, end: 20130515
  44. ROKIPRIM [Concomitant]
     Dosage: 750 DAILY
     Route: 042
     Dates: start: 20130516, end: 20130516
  45. ROKIPRIM [Concomitant]
     Dosage: 250 DAILY
     Route: 042
     Dates: start: 20130521, end: 20130521
  46. APREDNISOLON [Concomitant]
     Dosage: 50 DAILY
     Dates: start: 20130524
  47. BERODUAL [Concomitant]
     Dosage: 4X6 GGT
     Dates: start: 20130515
  48. NOVALGIN [Concomitant]
     Dosage: 2 DAILY
     Route: 042
     Dates: start: 20130517, end: 20130517
  49. NOVALGIN [Concomitant]
     Dosage: 3 DAILY
     Route: 042
     Dates: start: 20130518, end: 20130518
  50. NOVALGIN [Concomitant]
     Dosage: 1 DAILY
     Route: 042
     Dates: start: 20130528, end: 20130528
  51. KLACID [Concomitant]
     Dosage: 1000 DAILY
     Dates: start: 20130530
  52. ZITHROMAX [Concomitant]
     Dosage: 1X1
     Dates: start: 20130524, end: 20130526
  53. NEBILAN [Concomitant]
     Dosage: 5 DAILY
     Dates: start: 20130528
  54. TUSSAMAG [Concomitant]
     Dosage: 1-3X/D 1MB
     Dates: start: 20130524
  55. RIVOTRIL [Concomitant]
     Dates: start: 20130508, end: 20130512

REACTIONS (1)
  - Acute respiratory distress syndrome [Recovered/Resolved]
